FAERS Safety Report 6841624-1 (Version None)
Quarter: 2010Q3

REPORT INFORMATION
  Report Type: 
  Country: None (occurrence: None)
  Receive Date: 20100714
  Receipt Date: 20070710
  Transmission Date: 20110219
  Serious: Yes (Other)
  Sender: FDA-Public Use
  Company Number: US-PFIZER INC-2007058002

PATIENT
  Sex: Male
  Weight: 52.727 kg

DRUGS (2)
  1. CHANTIX [Suspect]
     Indication: SMOKING CESSATION THERAPY
     Route: 048
     Dates: start: 20070601
  2. WELLBUTRIN [Concomitant]

REACTIONS (3)
  - DRUG PRESCRIBING ERROR [None]
  - RASH GENERALISED [None]
  - SECRETION DISCHARGE [None]
